FAERS Safety Report 15783024 (Version 1)
Quarter: 2019Q1

REPORT INFORMATION
  Report Type: Spontaneous
  Country: US (occurrence: US)
  Receive Date: 20190102
  Receipt Date: 20190102
  Transmission Date: 20190417
  Serious: No
  Sender: FDA-Public Use
  Company Number: US-PERRIGO-18US000969

PATIENT
  Sex: Female
  Weight: 58.5 kg

DRUGS (2)
  1. STIE-CORT [Suspect]
     Active Substance: HYDROCORTISONE
     Indication: MILIARIA
     Dosage: 1 SMALL APPLICATION, UNKNOWN
     Route: 061
     Dates: start: 2008, end: 2008
  2. STIE-CORT [Suspect]
     Active Substance: HYDROCORTISONE
     Dosage: 1 SMALL APPLICATION, QOD
     Route: 061
     Dates: start: 2008, end: 20180128

REACTIONS (3)
  - Inappropriate schedule of product administration [Recovered/Resolved]
  - Hypersensitivity [Not Recovered/Not Resolved]
  - Application site rash [Not Recovered/Not Resolved]

NARRATIVE: CASE EVENT DATE: 2008
